FAERS Safety Report 9105176 (Version 1)
Quarter: 2013Q1

REPORT INFORMATION
  Report Type: Spontaneous
  Country: US (occurrence: US)
  Receive Date: 20130220
  Receipt Date: 20130220
  Transmission Date: 20140127
  Serious: Yes (Other)
  Sender: FDA-Public Use
  Company Number: US-PFIZER INC-2013060999

PATIENT
  Age: 41 Year
  Sex: Female
  Weight: 90.7 kg

DRUGS (4)
  1. LEVOXYL [Suspect]
     Indication: THYROID DISORDER
     Dosage: 125 UG, SIX TIMES A WEEK
     Route: 048
     Dates: start: 2003
  2. LEVOXYL [Suspect]
     Dosage: 150 UG, 1X/DAY, SEVEN TIMES A WEEK
     Route: 048
  3. LEVOXYL [Suspect]
     Dosage: UNK
     Route: 048
  4. METOPROLOL [Concomitant]
     Indication: HYPERTENSION
     Dosage: 25 MG, 1X/DAY

REACTIONS (4)
  - Product quality issue [Unknown]
  - Pharyngeal oedema [Unknown]
  - Throat tightness [Unknown]
  - Dizziness [Unknown]
